FAERS Safety Report 9458966 (Version 1)
Quarter: 2013Q3

REPORT INFORMATION
  Report Type: Spontaneous
  Country: US (occurrence: US)
  Receive Date: 20130814
  Receipt Date: 20130814
  Transmission Date: 20140515
  Serious: No
  Sender: FDA-Public Use
  Company Number: US-TARO-2013P1010850

PATIENT
  Age: 42 Year
  Sex: Female
  Weight: 60.78 kg

DRUGS (1)
  1. DESONIDE [Suspect]
     Indication: DERMATITIS CONTACT
     Route: 061
     Dates: start: 201306, end: 201306

REACTIONS (3)
  - Application site papules [Recovered/Resolved]
  - Product substitution issue [Recovered/Resolved]
  - Application site erythema [Recovered/Resolved]
